FAERS Safety Report 15495206 (Version 1)
Quarter: 2018Q4

REPORT INFORMATION
  Report Type: Spontaneous
  Country: DE (occurrence: DE)
  Receive Date: 20181012
  Receipt Date: 20181012
  Transmission Date: 20190205
  Serious: Yes (Other)
  Sender: FDA-Public Use
  Company Number: PHHY2018DE119300

PATIENT
  Sex: Female

DRUGS (1)
  1. CURAM [Suspect]
     Active Substance: AMOXICILLIN\CLAVULANATE POTASSIUM
     Indication: EXPOSURE VIA BREAST MILK
     Dosage: 1 DF, UNK
     Route: 063

REACTIONS (2)
  - Exposure via breast milk [Unknown]
  - Seizure [Unknown]
